FAERS Safety Report 9828614 (Version 4)
Quarter: 2014Q1

REPORT INFORMATION
  Report Type: Report from Study
  Country: AU (occurrence: AU)
  Receive Date: 20140117
  Receipt Date: 20140312
  Transmission Date: 20141002
  Serious: Yes (Hospitalization)
  Sender: FDA-Public Use
  Company Number: AU-CELGENEUS-008-21660-14011417

PATIENT
  Age: 68 Year
  Sex: Male

DRUGS (8)
  1. ABRAXANE [Suspect]
     Indication: PANCREATIC CARCINOMA
     Route: 065
     Dates: start: 201306, end: 20131205
  2. GEMCITABINE [Suspect]
     Indication: PANCREATIC CARCINOMA
     Route: 065
     Dates: start: 20130613, end: 20131205
  3. VYTORIN [Concomitant]
     Indication: UNEVALUABLE EVENT
     Dosage: 10/40
     Route: 048
  4. METOPROLOL [Concomitant]
     Indication: UNEVALUABLE EVENT
     Dosage: 75 MILLIGRAM
     Route: 048
  5. METOPROLOL [Concomitant]
     Route: 065
  6. ASPIRINE [Concomitant]
     Indication: UNEVALUABLE EVENT
     Dosage: 100 MILLIGRAM
     Route: 048
     Dates: end: 20140206
  7. CREON [Concomitant]
     Indication: PROPHYLAXIS
     Route: 048
  8. RED BLOOD CELLS [Concomitant]
     Indication: PRODUCT USED FOR UNKNOWN INDICATION
     Route: 041

REACTIONS (2)
  - Renal failure acute [Not Recovered/Not Resolved]
  - Haemolytic uraemic syndrome [Not Recovered/Not Resolved]
